FAERS Safety Report 9892130 (Version 2)
Quarter: 2014Q1

REPORT INFORMATION
  Report Type: Spontaneous
  Country: US (occurrence: US)
  Receive Date: 20140212
  Receipt Date: 20140307
  Transmission Date: 20141002
  Serious: Yes (Hospitalization)
  Sender: FDA-Public Use
  Company Number: US-009507513-1402USA002379

PATIENT
  Age: 64 Year
  Sex: Male

DRUGS (13)
  1. ISENTRESS [Suspect]
     Indication: HIV INFECTION
     Dosage: 400 MG, TWICE DAILY
     Route: 048
  2. ISENTRESS [Suspect]
     Dosage: UNK
     Route: 048
     Dates: start: 2002
  3. COZAAR [Suspect]
     Indication: BLOOD PRESSURE
     Dosage: 50 MG, ONCE DAILY
     Route: 048
  4. COZAAR [Suspect]
     Dosage: UNK
     Route: 048
     Dates: start: 2004
  5. PREZISTA [Concomitant]
  6. NORVIR [Concomitant]
  7. NIASPAN [Concomitant]
  8. TRILIP [Concomitant]
  9. ASPIRIN [Concomitant]
     Route: 048
  10. TRUVADA [Concomitant]
  11. LOVASA [Concomitant]
  12. VITAMIN D (UNSPECIFIED) [Concomitant]
  13. PRAVASTATIN SODIUM [Concomitant]

REACTIONS (3)
  - Thrombosis [Unknown]
  - Pulmonary thrombosis [Unknown]
  - Pain in extremity [Recovered/Resolved]
